FAERS Safety Report 10187958 (Version 1)
Quarter: 2014Q2

REPORT INFORMATION
  Report Type: Spontaneous
  Country: US (occurrence: US)
  Receive Date: 20140522
  Receipt Date: 20140522
  Transmission Date: 20141212
  Serious: No
  Sender: FDA-Public Use
  Company Number: US-SA-2013SA096125

PATIENT
  Sex: 0

DRUGS (2)
  1. LANTUS [Suspect]
     Route: 058
  2. ANTIDEPRESSANTS [Concomitant]

REACTIONS (3)
  - Tremor [Unknown]
  - Depression [Unknown]
  - Blood glucose decreased [Unknown]
